FAERS Safety Report 12438301 (Version 4)
Quarter: 2016Q3

REPORT INFORMATION
  Report Type: Spontaneous
  Country: US (occurrence: US)
  Receive Date: 20160606
  Receipt Date: 20160822
  Transmission Date: 20161109
  Serious: Yes (Other)
  Sender: FDA-Public Use
  Company Number: US-GLAXOSMITHKLINE-US2016079388

PATIENT
  Sex: Female
  Weight: 78 kg

DRUGS (3)
  1. AMOXICILLIN + CLAVULANATE POTASSIUM [Concomitant]
     Active Substance: AMOXICILLIN\CLAVULANATE POTASSIUM
     Indication: PRODUCT USED FOR UNKNOWN INDICATION
     Dosage: UNK (500/125 MG)
  2. TRANSDERM SCOP [Suspect]
     Active Substance: SCOPOLAMINE
     Indication: NAUSEA
     Dosage: UNK, 1 PATCH EVERY 3 DAYS
     Route: 061
     Dates: start: 201506, end: 201507
  3. TRANSDERM SCOP [Suspect]
     Active Substance: SCOPOLAMINE
     Indication: VOMITING

REACTIONS (5)
  - Off label use [Unknown]
  - Application site rash [Not Recovered/Not Resolved]
  - Staphylococcal infection [Not Recovered/Not Resolved]
  - Product quality issue [Unknown]
  - Secretion discharge [Recovering/Resolving]
